FAERS Safety Report 8744265 (Version 2)
Quarter: 2013Q4

REPORT INFORMATION
  Report Type: Report from Study
  Country: JP (occurrence: JP)
  Receive Date: 20120824
  Receipt Date: 20131108
  Transmission Date: 20140711
  Serious: Yes (Death, Hospitalization, Other)
  Sender: FDA-Public Use
  Company Number: JP-MERCK-2011SP053521

PATIENT
  Age: 68 Year
  Sex: Male
  Weight: 56 kg

DRUGS (12)
  1. TEMOZOLOMIDE [Suspect]
     Indication: ANAPLASTIC ASTROCYTOMA
     Dosage: 75 MG/M2, QD
     Route: 048
     Dates: start: 20081014, end: 20081110
  2. BAKTAR [Suspect]
     Indication: ANTIFUNGAL PROPHYLAXIS
     Dosage: UNK
     Route: 048
     Dates: start: 20081022, end: 20081116
  3. ALEVIATIN [Suspect]
     Indication: ANAPLASTIC ASTROCYTOMA
     Route: 048
     Dates: start: 20080909, end: 20081124
  4. ORGACARPIN [Concomitant]
     Route: 048
     Dates: start: 20080827
  5. LOXONIN [Concomitant]
     Route: 048
     Dates: start: 20080831
  6. MYSTAN [Concomitant]
     Dosage: UNK
     Route: 048
     Dates: start: 20081212
  7. VOLTAREN [Concomitant]
     Route: 054
     Dates: start: 20080905
  8. SERENACE [Concomitant]
     Route: 048
     Dates: start: 20080906
  9. SOLANAX [Concomitant]
     Route: 048
     Dates: start: 20080909
  10. NAUZELIN [Concomitant]
     Indication: PROPHYLAXIS
     Route: 048
     Dates: start: 20081014
  11. GASTER (FAMOTIDINE) [Concomitant]
     Indication: PROPHYLAXIS
     Dates: start: 20080902
  12. LASIX (FUROSEMIDE) [Concomitant]

REACTIONS (11)
  - Conjunctival hyperaemia [Recovering/Resolving]
  - Respiratory failure [Recovering/Resolving]
  - Hiccups [Recovering/Resolving]
  - Extrapyramidal disorder [Recovering/Resolving]
  - Hypersensitivity [Recovered/Resolved]
  - Pyrexia [Recovering/Resolving]
  - Chills [Recovering/Resolving]
  - Tremor [Recovering/Resolving]
  - Disease progression [Fatal]
  - Acute respiratory distress syndrome [Recovered/Resolved]
  - Neutrophil count decreased [Recovered/Resolved]
